FAERS Safety Report 16144826 (Version 1)
Quarter: 2019Q2

REPORT INFORMATION
  Report Type: Spontaneous
  Country: US (occurrence: US)
  Receive Date: 20190401
  Receipt Date: 20190401
  Transmission Date: 20190711
  Serious: Yes (Disabling)
  Sender: FDA-Public Use
  Company Number: None

PATIENT
  Age: 79 Year
  Sex: Female
  Weight: 74.25 kg

DRUGS (1)
  1. REPATHA [Suspect]
     Active Substance: EVOLOCUMAB
     Indication: LOW DENSITY LIPOPROTEIN INCREASED

REACTIONS (7)
  - Musculoskeletal stiffness [None]
  - Insomnia [None]
  - Gait disturbance [None]
  - Hyperhidrosis [None]
  - Influenza like illness [None]
  - Hot flush [None]
  - Nausea [None]

NARRATIVE: CASE EVENT DATE: 20190101
